FAERS Safety Report 8275212-X (Version None)
Quarter: 2012Q2

REPORT INFORMATION
  Report Type: 
  Country: None (occurrence: None)
  Receive Date: 20120411
  Receipt Date: 20120406
  Transmission Date: 20120825
  Serious: No
  Sender: FDA-Public Use
  Company Number: US-BAYER-2012-034617

PATIENT
  Age: 64 Year
  Sex: Male
  Weight: 85 kg

DRUGS (3)
  1. VITAMIN TAB [Concomitant]
     Route: 048
  2. ALEVE (CAPLET) [Suspect]
     Indication: PAIN
     Dosage: 1 U, PRN
     Route: 048
  3. NAPROXEN (ALEVE) [Suspect]
     Indication: PAIN
     Dosage: 1 U, PRN
     Route: 048
     Dates: start: 20120201, end: 20120315

REACTIONS (2)
  - BURNING SENSATION [None]
  - THROAT IRRITATION [None]
